FAERS Safety Report 8035846-4 (Version None)
Quarter: 2012Q1

REPORT INFORMATION
  Report Type: 
  Country: None (occurrence: None)
  Receive Date: 20120111
  Receipt Date: 20120111
  Transmission Date: 20120608
  Serious: Yes (Other)
  Sender: FDA-Public Use
  Company Number: None

PATIENT
  Age: 43 Year
  Sex: Male
  Weight: 124.73 kg

DRUGS (5)
  1. VITAMIN D [Concomitant]
     Route: 048
  2. ATORVASTATIN [Suspect]
     Indication: BLOOD CHOLESTEROL
     Dosage: 20 MG
     Route: 048
     Dates: start: 20111206, end: 20111227
  3. VITAMIN B-12 [Concomitant]
  4. VICODIN [Concomitant]
  5. METAPROLOL [Concomitant]

REACTIONS (1)
  - HEADACHE [None]
